FAERS Safety Report 4290362-0 (Version None)
Quarter: 2004Q1

REPORT INFORMATION
  Report Type: 
  Country: None (occurrence: None)
  Receive Date: 20040209
  Receipt Date: 20040128
  Transmission Date: 20041129
  Serious: Yes (Other)
  Sender: FDA-Public Use
  Company Number: 200410477BCC

PATIENT
  Sex: Male
  Weight: 102.0593 kg

DRUGS (4)
  1. ASPIRIN [Suspect]
  2. BACLOFEN [Concomitant]
  3. DITROPAN [Concomitant]
  4. EROEIGL [Concomitant]

REACTIONS (2)
  - BLOOD URINE [None]
  - EPISTAXIS [None]
